FAERS Safety Report 7425788-7 (Version None)
Quarter: 2011Q2

REPORT INFORMATION
  Report Type: 
  Country: None (occurrence: None)
  Receive Date: 20110418
  Receipt Date: 20110418
  Transmission Date: 20111010
  Serious: Yes (Congenital Anomaly)
  Sender: FDA-Public Use
  Company Number: None

PATIENT
  Age: 28 Year
  Sex: Female
  Weight: 63.5036 kg

DRUGS (1)
  1. PRED FORTE [Suspect]
     Indication: SCLERITIS
     Dosage: 1 DROP EVERY 4 HOURS INTRAOCULAR
     Route: 031
     Dates: start: 20100301, end: 20100401

REACTIONS (1)
  - DRUG EXPOSURE DURING PREGNANCY [None]
